FAERS Safety Report 11884357 (Version 1)
Quarter: 2016Q1

REPORT INFORMATION
  Report Type: Spontaneous
  Country: GB (occurrence: GB)
  Receive Date: 20160103
  Receipt Date: 20160103
  Transmission Date: 20160526
  Serious: Yes (Other)
  Sender: FDA-Public Use
  Company Number: GB-TEVA-621896ACC

PATIENT
  Sex: Female

DRUGS (1)
  1. CLARITHROMYCIN. [Suspect]
     Active Substance: CLARITHROMYCIN
     Route: 065

REACTIONS (7)
  - Eating disorder [Unknown]
  - Syncope [Unknown]
  - Local swelling [Unknown]
  - Swollen tongue [Unknown]
  - Oral disorder [Unknown]
  - Trismus [Unknown]
  - Pyrexia [Unknown]
